FAERS Safety Report 6862231-0 (Version None)
Quarter: 2010Q3

REPORT INFORMATION
  Report Type: 
  Country: None (occurrence: None)
  Receive Date: 20100721
  Receipt Date: 20100714
  Transmission Date: 20110219
  Serious: Yes (Other)
  Sender: FDA-Public Use
  Company Number: PT-WYE-H16041010

PATIENT
  Age: 56 Year
  Sex: Male

DRUGS (4)
  1. PANTOC [Suspect]
     Indication: GASTROOESOPHAGEAL REFLUX DISEASE
     Route: 048
     Dates: start: 20080501, end: 20100101
  2. PANTOC [Suspect]
     Indication: BARRETT'S OESOPHAGUS
     Route: 048
     Dates: start: 20100618
  3. GLUCOSAMINE [Concomitant]
     Dosage: UNKNOWN
  4. DOXAZOSIN [Concomitant]
     Indication: BENIGN PROSTATIC HYPERPLASIA
     Dosage: UNKNOWN
     Dates: start: 20100101

REACTIONS (2)
  - FATIGUE [None]
  - IRON DEFICIENCY ANAEMIA [None]
